FAERS Safety Report 13880349 (Version 1)
Quarter: 2017Q3

REPORT INFORMATION
  Report Type: Spontaneous
  Country: JP (occurrence: JP)
  Receive Date: 20170818
  Receipt Date: 20170818
  Transmission Date: 20171127
  Serious: Yes (Other)
  Sender: FDA-Public Use
  Company Number: JP-ROCHE-1977542

PATIENT
  Age: 14 Year
  Sex: Male

DRUGS (2)
  1. NUTROPIN [Suspect]
     Active Substance: SOMATROPIN
     Indication: GROWTH HORMONE DEFICIENCY
     Dosage: BETWEEN 5.8 AND 10.7 YEARS OF AGE
     Route: 065
  2. NUTROPIN [Suspect]
     Active Substance: SOMATROPIN
     Dosage: AT 10.7 YEARS OF AGE
     Route: 065

REACTIONS (1)
  - IgA nephropathy [Not Recovered/Not Resolved]

NARRATIVE: CASE EVENT DATE: 200405
